FAERS Safety Report 9345453 (Version 2)
Quarter: 2013Q3

REPORT INFORMATION
  Report Type: Spontaneous
  Country: IE (occurrence: IE)
  Receive Date: 20130613
  Receipt Date: 20130730
  Transmission Date: 20140515
  Serious: Yes (Other)
  Sender: FDA-Public Use
  Company Number: IE-ASTRAZENECA-2013SE40962

PATIENT
  Sex: Female

DRUGS (3)
  1. NEXIUM [Suspect]
     Route: 048
     Dates: start: 200904
  2. ZYRTEC LONG [Concomitant]
     Indication: MULTIPLE ALLERGIES
     Route: 048
  3. AVAMYS [Concomitant]
     Indication: MULTIPLE ALLERGIES
     Route: 045

REACTIONS (1)
  - Osteopenia [Not Recovered/Not Resolved]
